FAERS Safety Report 8027627-2 (Version None)
Quarter: 2012Q1

REPORT INFORMATION
  Report Type: 
  Country: None (occurrence: None)
  Receive Date: 20120105
  Receipt Date: 20120105
  Transmission Date: 20120608
  Serious: Yes (Hospitalization)
  Sender: FDA-Public Use
  Company Number: None

PATIENT
  Age: 66 Year
  Sex: Male
  Weight: 91.8 kg

DRUGS (1)
  1. ETODOLAC [Suspect]
     Dosage: MG BID PO
     Route: 048
     Dates: start: 20110920

REACTIONS (1)
  - NEPHROTIC SYNDROME [None]
